FAERS Safety Report 9973335 (Version 2)
Quarter: 2014Q1

REPORT INFORMATION
  Report Type: Spontaneous
  Country: US (occurrence: US)
  Receive Date: 20140306
  Receipt Date: 20140317
  Transmission Date: 20141002
  Serious: Yes (Death, Life-Threatening, Other)
  Sender: FDA-Public Use
  Company Number: US-BRISTOL-MYERS SQUIBB COMPANY-20347654

PATIENT
  Age: 56 Year
  Sex: Male

DRUGS (8)
  1. BYETTA PEN DISPOSABLE [Suspect]
  2. PROGRAF [Concomitant]
  3. SPIRONOLACTONE [Concomitant]
  4. LISINOPRIL [Concomitant]
  5. HYDROCHLOROTHIAZIDE [Concomitant]
  6. ZITHROMAX [Concomitant]
  7. ALBUTEROL [Concomitant]
  8. PROMETHAZINE HCL + CODEINE [Concomitant]

REACTIONS (3)
  - Pneumonia [Fatal]
  - Lip and/or oral cavity cancer [Unknown]
  - Weight decreased [Unknown]
